FAERS Safety Report 4507575-2 (Version None)
Quarter: 2004Q4

REPORT INFORMATION
  Report Type: 
  Country: None (occurrence: None)
  Receive Date: 20041118
  Receipt Date: 20041103
  Transmission Date: 20050328
  Serious: Yes (Death)
  Sender: FDA-Public Use
  Company Number: 2004-UK-01140UK

PATIENT
  Age: 29 Year
  Sex: Male

DRUGS (16)
  1. CATAPRES [Suspect]
     Indication: DRUG WITHDRAWAL SYNDROME
     Dosage: 0.1 MG (0.1 MG, AS REQUIRED) PO
     Route: 048
  2. BUSCOPAN (0015/5005R/0074R) (HYOSCINE BUTYLBROMIDE) (NR) [Suspect]
     Indication: DRUG WITHDRAWAL SYNDROME
     Dosage: 10 MG AS REQUIRED (, AS REQUIRED) PO
     Route: 048
  3. HEMINEVRIN         (CLOMETHIAZOLE EDISILATE) (NR) [Suspect]
     Indication: DRUG WITHDRAWAL SYNDROME
     Dosage: PO
     Route: 048
     Dates: start: 20010831
  4. OMEPRAZOLE [Suspect]
     Indication: DRUG WITHDRAWAL SYNDROME
     Dosage: 20 MG DAILY (NR) PO
     Route: 048
  5. DIAZEPAM [Suspect]
     Indication: DRUG WITHDRAWAL SYNDROME
     Dosage: 10 MG AS REQUIRED (, AS REQUIRED) PO
     Route: 048
  6. LORAZEPAM [Suspect]
     Indication: DRUG WITHDRAWAL SYNDROME
     Dosage: 2.5 MG AS REQUIRED (, AS REQUIRED) PO
     Route: 048
  7. TEMAZEPAM [Suspect]
     Indication: DRUG WITHDRAWAL SYNDROME
     Dosage: 20 MG AS REQUIRED (, AS REQUIRED) PO
     Route: 048
  8. ROHYPNOL            (FLUNITRAZEPAM) (NR) [Suspect]
     Indication: DRUG WITHDRAWAL SYNDROME
     Dosage: 1 MG AS REQUIRED (, AS REQUIRED) PO
     Route: 048
  9. CHLORPROMAZINE             (CHLORPROMAZINE) (NR) [Suspect]
     Indication: DRUG WITHDRAWAL SYNDROME
     Dosage: 50 MG AS REQUIRED  PO
     Route: 048
  10. OCTREOTIDE (OCTREOTIDE) (NR) [Suspect]
     Indication: ANTIDIARRHOEAL SUPPORTIVE CARE
     Dosage: 100 MCG EVERY 12 HOURS (, EVERY 12 HOURS) SC
     Route: 058
  11. METOCLOPRAMIDE (METOCLOPRAMIDE) (NR) [Suspect]
     Indication: DRUG WITHDRAWAL SYNDROME
     Dosage: 10 MG EVERY 8 HOURS (, EVERY 8 HOURS) SC
     Route: 058
  12. BUCCASTEM (PROCHLORPERAZINE MALEATE) (NR) [Suspect]
     Indication: DRUG WITHDRAWAL SYNDROME
     Dosage: PO
     Route: 048
  13. NALTREXONE (NALTREXONE) (NR) [Suspect]
     Indication: DRUG WITHDRAWAL SYNDROME
     Dosage: PO
     Route: 048
  14. ACUPAN [Suspect]
     Indication: DRUG WITHDRAWAL SYNDROME
     Dosage: PO
     Route: 048
  15. VOLTAROL (DICLOFENAC SODIUM) (NR) [Suspect]
     Indication: DRUG WITHDRAWAL SYNDROME
     Dosage: 25 MG THREE TIMES DAILY (25 NR, THREE TIMES DAILY) PO
     Route: 048
  16. ZOFRAN [Suspect]
     Indication: DRUG WITHDRAWAL SYNDROME
     Dosage: 8 MG AS REQUIRED (, AS REQUIRED) PO
     Route: 048

REACTIONS (1)
  - FOREIGN BODY ASPIRATION [None]
